FAERS Safety Report 8585469 (Version 3)
Quarter: 2012Q4

REPORT INFORMATION
  Report Type: 
  Country: US (occurrence: US)
  Receive Date: 20120530
  Receipt Date: 20120829
  Transmission Date: 20130627
  Serious: Yes (Death)
  Sender: FDA-Public Use
  Company Number: US-PFIZER INC-2012126179

PATIENT
  Age: 68 Year
  Sex: Female

DRUGS (17)
  1. XALKORI [Suspect]
     Indication: NON-SMALL CELL LUNG CANCER METASTATIC
     Dosage: 250 mg, 2x/day
     Route: 048
     Dates: start: 20120225, end: 20120229
  2. KLONOPIN [Concomitant]
     Dosage: 0.5 mg, q.h.s.
  3. TYLENOL [Concomitant]
     Dosage: 500 mg, as needed (p.r.n.)
  4. VITAMIN B6 [Concomitant]
     Dosage: 50 mg, 2x/day
  5. ZOFRAN [Concomitant]
     Dosage: UNK, p.r.n.
  6. VIACTIV [Concomitant]
     Dosage: UNK, b.i.d.
  7. VIACTIV [Concomitant]
     Dosage: 1 q.a.m.
  8. SENOKOT [Concomitant]
     Dosage: UNK, p.r.n.
  9. AMBIEN [Concomitant]
     Dosage: 5 mg, (1 q.h.s)
  10. VITAMIN B12 [Concomitant]
     Dosage: 1 mg, 1x/day
  11. OXYCONTIN [Concomitant]
     Dosage: 10 mg, q. 12 h.
  12. OXYIR [Concomitant]
     Indication: PAIN
     Dosage: 10-20mg q 3-4 h, p.r.n.
  13. MAGIC MOUTHWASH [Concomitant]
     Dosage: UNK, P.r.n.
  14. SUDAFED [Concomitant]
     Dosage: UNK, 2 P.r.n.
  15. CHLORASEPTIC [Concomitant]
     Dosage: UNK, p.r.n.
  16. ROBITUSSIN COLD + COUGH [Concomitant]
     Indication: COUGH
     Dosage: UNK, p.r.n.
  17. SALINEX NASAL DROPS [Concomitant]
     Dosage: UNK

REACTIONS (2)
  - Disease progression [Fatal]
  - Non-small cell lung cancer metastatic [Fatal]
